FAERS Safety Report 9822463 (Version 1)
Quarter: 2014Q1

REPORT INFORMATION
  Report Type: Spontaneous
  Country: CA (occurrence: CA)
  Receive Date: 20140116
  Receipt Date: 20140116
  Transmission Date: 20141002
  Serious: No
  Sender: FDA-Public Use
  Company Number: CA-ORAPHARMA-20110504715

PATIENT
  Sex: 0

DRUGS (1)
  1. ARESTIN [Suspect]
     Indication: GINGIVITIS
     Route: 048
     Dates: start: 20110427

REACTIONS (1)
  - Throat irritation [Recovering/Resolving]
